FAERS Safety Report 8623519-6 (Version None)
Quarter: 2012Q3

REPORT INFORMATION
  Report Type: 
  Country: None (occurrence: None)
  Receive Date: 20120824
  Receipt Date: 20120824
  Transmission Date: 20120928
  Serious: Yes (Hospitalization)
  Sender: FDA-Public Use
  Company Number: None

PATIENT
  Age: 79 Year
  Sex: Male

DRUGS (1)
  1. MIRTAZAPINE [Suspect]
     Indication: DEPRESSION
     Dosage: 15 MG, AT  BEDTIME, PO
     Route: 048
     Dates: start: 20120216, end: 20120406

REACTIONS (4)
  - HYPOTENSION [None]
  - FATIGUE [None]
  - SYNCOPE [None]
  - DIZZINESS [None]
